FAERS Safety Report 9692651 (Version 1)
Quarter: 2013Q4

REPORT INFORMATION
  Report Type: Report from Study
  Country: FR (occurrence: FR)
  Receive Date: 20131118
  Receipt Date: 20131118
  Transmission Date: 20140711
  Serious: Yes (Other)
  Sender: FDA-Public Use
  Company Number: PHHY2013FR130789

PATIENT
  Age: 75 Year
  Sex: Female
  Weight: 56 kg

DRUGS (4)
  1. ACLASTA/ZOLEDRONATE [Suspect]
     Indication: OSTEOPOROSIS
     Dosage: 5 MG, UNK
     Route: 042
     Dates: start: 20110926
  2. ACLASTA/ZOLEDRONATE [Suspect]
     Dosage: 5 MG, UNK
     Route: 042
     Dates: start: 20121018
  3. VENTOLINE [Concomitant]
     Indication: ASTHMA
     Dosage: UNK UKN, UNK
  4. FENOBIBRATE [Concomitant]
     Indication: HYPERCHOLESTEROLAEMIA
     Dosage: UNK UKN, UNK

REACTIONS (3)
  - Weight decreased [Not Recovered/Not Resolved]
  - Anaemia [Not Recovered/Not Resolved]
  - Asthenia [Not Recovered/Not Resolved]
